FAERS Safety Report 15923627 (Version 1)
Quarter: 2019Q1

REPORT INFORMATION
  Report Type: Spontaneous
  Country: US (occurrence: US)
  Receive Date: 20190206
  Receipt Date: 20190206
  Transmission Date: 20190417
  Serious: Yes (Hospitalization)
  Sender: FDA-Public Use
  Company Number: None

PATIENT
  Sex: Male

DRUGS (13)
  1. XELJANZ [Suspect]
     Active Substance: TOFACITINIB CITRATE
     Indication: RHEUMATOID ARTHRITIS
     Route: 048
     Dates: start: 20180706
  2. DIAZEPAM. [Concomitant]
     Active Substance: DIAZEPAM
  3. FOLIC ACID. [Concomitant]
     Active Substance: FOLIC ACID
  4. INVOKANA [Concomitant]
     Active Substance: CANAGLIFLOZIN
  5. GABAPENTIN. [Concomitant]
     Active Substance: GABAPENTIN
  6. TOUJEO SOLO [Concomitant]
  7. VALIUM [Concomitant]
     Active Substance: DIAZEPAM
  8. PREDNISONE. [Concomitant]
     Active Substance: PREDNISONE
  9. VICTOZA [Concomitant]
     Active Substance: LIRAGLUTIDE
  10. GLIPIZIDE ER [Concomitant]
     Active Substance: GLIPIZIDE
  11. METHOTREXATE. [Concomitant]
     Active Substance: METHOTREXATE
  12. JANUMET [Concomitant]
     Active Substance: METFORMIN HYDROCHLORIDE\SITAGLIPTIN PHOSPHATE
  13. LOSARTAN POT [Concomitant]
     Active Substance: LOSARTAN POTASSIUM

REACTIONS (3)
  - Rheumatoid arthritis [None]
  - Nerve injury [None]
  - Therapy cessation [None]
